FAERS Safety Report 9994880 (Version 3)
Quarter: 2014Q2

REPORT INFORMATION
  Report Type: Spontaneous
  Country: IT (occurrence: None)
  Receive Date: 20140306
  Receipt Date: 20140430
  Transmission Date: 20141212
  Serious: Yes (Hospitalization, Other)
  Sender: FDA-Public Use
  Company Number: AUR-APL-2014-02308

PATIENT
  Age: 62 Year
  Sex: Male
  Weight: 75 kg

DRUGS (1)
  1. ALENDRONIC ACID [Suspect]
     Indication: MYALGIA
     Route: 048
     Dates: start: 20050205, end: 20130110

REACTIONS (4)
  - Osteonecrosis of jaw [None]
  - Tooth abscess [None]
  - Jaw disorder [None]
  - Off label use [None]
